FAERS Safety Report 9833096 (Version 1)
Quarter: 2014Q1

REPORT INFORMATION
  Report Type: Spontaneous
  Country: US (occurrence: US)
  Receive Date: 20140121
  Receipt Date: 20140121
  Transmission Date: 20141002
  Serious: No
  Sender: FDA-Public Use
  Company Number: US-TEVA-457199USA

PATIENT
  Age: 55 Year
  Sex: Female
  Weight: 99.88 kg

DRUGS (3)
  1. PROAIR HFA [Suspect]
     Indication: BRONCHITIS
  2. PREDNISONE [Concomitant]
  3. MULTIVITAMIN [Concomitant]

REACTIONS (2)
  - Delayed sleep phase [Unknown]
  - Fatigue [Unknown]
